FAERS Safety Report 24281056 (Version 1)
Quarter: 2024Q3

REPORT INFORMATION
  Report Type: Spontaneous
  Country: CN (occurrence: CN)
  Receive Date: 20240904
  Receipt Date: 20240904
  Transmission Date: 20241017
  Serious: Yes (Death, Life-Threatening, Other)
  Sender: PFIZER
  Company Number: CN-PFIZER INC-PV202400113892

PATIENT
  Age: 39 Year
  Sex: Female

DRUGS (7)
  1. LINEZOLID [Suspect]
     Active Substance: LINEZOLID
     Indication: Pneumonia necrotising
     Dosage: UNK
  2. LINEZOLID [Suspect]
     Active Substance: LINEZOLID
     Indication: Influenza
  3. LINEZOLID [Suspect]
     Active Substance: LINEZOLID
     Indication: Staphylococcal infection
  4. IMIPENEM [Suspect]
     Active Substance: IMIPENEM
     Indication: Evidence based treatment
     Dosage: UNK
  5. IMIPENEM [Suspect]
     Active Substance: IMIPENEM
     Indication: Pneumonia necrotising
  6. IMIPENEM [Suspect]
     Active Substance: IMIPENEM
     Indication: Influenza
  7. IMIPENEM [Suspect]
     Active Substance: IMIPENEM
     Indication: Staphylococcal infection

REACTIONS (1)
  - Drug ineffective [Fatal]
